FAERS Safety Report 7927277-X (Version None)
Quarter: 2011Q4

REPORT INFORMATION
  Report Type: 
  Country: None (occurrence: None)
  Receive Date: 20111116
  Receipt Date: 20111104
  Transmission Date: 20120403
  Serious: Yes (Other)
  Sender: FDA-Public Use
  Company Number: 2QLT2011US01031

PATIENT
  Age: 90 Year
  Sex: Female

DRUGS (2)
  1. VISUDYNE [Suspect]
     Indication: RETINAL NEOVASCULARISATION
     Dates: start: 20110620, end: 20110620
  2. AVASTIN [Suspect]
     Indication: RETINAL NEOVASCULARISATION
     Dates: start: 20110623, end: 20110623

REACTIONS (2)
  - MACULAR HOLE [None]
  - VISUAL ACUITY REDUCED [None]
